FAERS Safety Report 8144400-5 (Version None)
Quarter: 2012Q1

REPORT INFORMATION
  Report Type: 
  Country: None (occurrence: None)
  Receive Date: 20120214
  Receipt Date: 20120202
  Transmission Date: 20120608
  Serious: Yes (Other)
  Sender: FDA-Public Use
  Company Number: 1183741

PATIENT
  Age: 63 Year
  Sex: Male
  Weight: 63.7 kg

DRUGS (3)
  1. PACLITAXEL [Concomitant]
  2. CARBOPLATIN [Suspect]
     Indication: LUNG NEOPLASM MALIGNANT
     Dosage: 580 MG, Q 21 DAYS, INTRAVENOUS (NOT OTHERWISE SPECIFIED)
     Route: 042
     Dates: start: 20120202, end: 20120202
  3. LUNG CANCER (LUNG NEOPLASM MALIGNANT) [Concomitant]

REACTIONS (1)
  - INFUSION SITE ERYTHEMA [None]
